FAERS Safety Report 23044942 (Version 2)
Quarter: 2023Q4

REPORT INFORMATION
  Report Type: Spontaneous
  Country: AT (occurrence: AT)
  Receive Date: 20231009
  Receipt Date: 20231018
  Transmission Date: 20240109
  Serious: Yes (Hospitalization)
  Sender: FDA-Public Use
  Company Number: AT-SERVIER-S23011393

PATIENT
  Age: 54 Year
  Sex: Male

DRUGS (2)
  1. ONIVYDE [Suspect]
     Active Substance: IRINOTECAN HYDROCHLORIDE
     Indication: Ductal adenocarcinoma of pancreas
     Dosage: UNK
     Route: 042
     Dates: start: 2021
  2. FLUOROURACIL [Concomitant]
     Active Substance: FLUOROURACIL
     Indication: Ductal adenocarcinoma of pancreas
     Dosage: UNK
     Route: 042
     Dates: start: 2021

REACTIONS (5)
  - Norovirus infection [Unknown]
  - Metastases to liver [Unknown]
  - Mucosal inflammation [Unknown]
  - Disease progression [Unknown]
  - Product use issue [Recovered/Resolved]

NARRATIVE: CASE EVENT DATE: 20210101
